FAERS Safety Report 6760834-5 (Version None)
Quarter: 2010Q2

REPORT INFORMATION
  Report Type: 
  Country: None (occurrence: None)
  Receive Date: 20100607
  Receipt Date: 20100607
  Transmission Date: 20101027
  Serious: No
  Sender: FDA-Public Use
  Company Number: None

PATIENT
  Age: 64 Year
  Sex: Female
  Weight: 74.8435 kg

DRUGS (1)
  1. LEVAQUIN [Suspect]
     Indication: SINUSITIS
     Dosage: 1 TABLET EVERY DAY PO
     Route: 048
     Dates: start: 20100310, end: 20100317

REACTIONS (3)
  - MUSCLE SPASMS [None]
  - PAIN [None]
  - TENDONITIS [None]
